FAERS Safety Report 12758612 (Version 2)
Quarter: 2016Q3

REPORT INFORMATION
  Report Type: Spontaneous
  Country: US (occurrence: US)
  Receive Date: 20160919
  Receipt Date: 20160922
  Transmission Date: 20161109
  Serious: Yes (Other)
  Sender: FDA-Public Use
  Company Number: US-CELGENEUS-USA-2016093230

PATIENT
  Sex: Male
  Weight: 87.62 kg

DRUGS (1)
  1. OTEZLA [Suspect]
     Active Substance: APREMILAST
     Indication: PSORIASIS
     Dosage: 60 MILLIGRAM
     Route: 048
     Dates: start: 20160429, end: 20160912

REACTIONS (6)
  - Pain [Unknown]
  - Diarrhoea [Unknown]
  - Psoriasis [Unknown]
  - Constipation [Unknown]
  - Abdominal distension [Unknown]
  - Abdominal discomfort [Unknown]

NARRATIVE: CASE EVENT DATE: 2016
